FAERS Safety Report 6240283-9 (Version None)
Quarter: 2009Q2

REPORT INFORMATION
  Report Type: 
  Country: None (occurrence: None)
  Receive Date: 20090623
  Receipt Date: 20080602
  Transmission Date: 20091009
  Serious: No
  Sender: FDA-Public Use
  Company Number: US-ASTRAZENECA-2008UW11049

PATIENT
  Age: 60 Year
  Sex: Female
  Weight: 103.4 kg

DRUGS (6)
  1. PULMICORT FLEXHALER [Suspect]
     Route: 055
     Dates: start: 20080530
  2. COREG [Concomitant]
  3. DIOVAN [Concomitant]
  4. SPIRONOLACTONE [Concomitant]
  5. TETRACYCLINE [Concomitant]
  6. ALLERGAN QD [Concomitant]

REACTIONS (2)
  - FEELING JITTERY [None]
  - INSOMNIA [None]
